FAERS Safety Report 23324395 (Version 2)
Quarter: 2024Q1

REPORT INFORMATION
  Report Type: Report from Study
  Country: ES (occurrence: ES)
  Receive Date: 20231221
  Receipt Date: 20240201
  Transmission Date: 20240410
  Serious: Yes (Hospitalization)
  Sender: FDA-Public Use
  Company Number: ES-CELLTRION INC.-2023ES023960

PATIENT

DRUGS (1)
  1. BEVACIZUMAB [Suspect]
     Active Substance: BEVACIZUMAB
     Indication: Product used for unknown indication
     Dosage: 3 MG/KG, SINGLE DOSE, ADMINISTERED AS 90-MINUTE INFUSION
     Route: 042

REACTIONS (2)
  - Purpura [Recovered/Resolved]
  - Upper respiratory tract infection [Unknown]
